FAERS Safety Report 19032060 (Version 1)
Quarter: 2021Q1

REPORT INFORMATION
  Report Type: Spontaneous
  Country: US (occurrence: US)
  Receive Date: 20210319
  Receipt Date: 20210319
  Transmission Date: 20210420
  Serious: Yes (Other)
  Sender: FDA-Public Use
  Company Number: US-TASMAN PHARMA, INC.-2020TSM00212

PATIENT
  Age: 65 Year
  Sex: Male
  Weight: 67.57 kg

DRUGS (1)
  1. CLOZAPINE. [Suspect]
     Active Substance: CLOZAPINE
     Indication: SCHIZOAFFECTIVE DISORDER
     Dosage: 100 MG, 1X/DAY AT BEDTIME
     Dates: start: 20121217

REACTIONS (4)
  - Dyspnoea [Recovering/Resolving]
  - Drug monitoring procedure not performed [Unknown]
  - Cough [Recovering/Resolving]
  - Coronavirus infection [Recovering/Resolving]

NARRATIVE: CASE EVENT DATE: 20200220
